FAERS Safety Report 20602615 (Version 1)
Quarter: 2022Q1

REPORT INFORMATION
  Report Type: Spontaneous
  Country: JP (occurrence: None)
  Receive Date: 20220316
  Receipt Date: 20220316
  Transmission Date: 20220423
  Serious: Yes (Hospitalization)
  Sender: FDA-Public Use
  Company Number: JP-Eisai Medical Research-EC-2021-090166

PATIENT
  Age: 58 Year
  Sex: Male
  Weight: 64 kg

DRUGS (2)
  1. LENVATINIB [Suspect]
     Active Substance: LENVATINIB
     Indication: Follicular thyroid cancer
     Dosage: FREQUENCY UNKNOWN
     Route: 048
     Dates: start: 20160317, end: 20191103
  2. LENVATINIB [Suspect]
     Active Substance: LENVATINIB
     Route: 048
     Dates: start: 201911

REACTIONS (2)
  - Pneumothorax [Recovered/Resolved]
  - Impaired healing [Recovered/Resolved]

NARRATIVE: CASE EVENT DATE: 20191101
